FAERS Safety Report 10675768 (Version 2)
Quarter: 2015Q1

REPORT INFORMATION
  Report Type: Report from Study
  Country: TR (occurrence: TR)
  Receive Date: 20141225
  Receipt Date: 20150126
  Transmission Date: 20150720
  Serious: Yes (Other)
  Sender: FDA-Public Use
  Company Number: TR-ROCHE-1513034

PATIENT

DRUGS (1)
  1. CAPECITABINE. [Suspect]
     Active Substance: CAPECITABINE
     Indication: RECTAL CANCER
     Route: 048

REACTIONS (4)
  - Diarrhoea [Unknown]
  - Thrombocytopenia [Unknown]
  - Proctitis [Unknown]
  - Palmar-plantar erythrodysaesthesia syndrome [Unknown]
